FAERS Safety Report 8238843-9 (Version None)
Quarter: 2012Q1

REPORT INFORMATION
  Report Type: 
  Country: None (occurrence: None)
  Receive Date: 20120327
  Receipt Date: 20120322
  Transmission Date: 20120608
  Serious: Yes (Other)
  Sender: FDA-Public Use
  Company Number: FR-B.I. PHARMACEUTICALS,INC./RIDGEFIELD-2012-FF-00345FF

PATIENT
  Sex: Male

DRUGS (1)
  1. PRAMIPEXOLE DIHYDROCHLORIDE [Suspect]
     Indication: PARKINSON'S DISEASE
     Dosage: 2.8 MG
     Route: 048
     Dates: start: 20060201

REACTIONS (3)
  - PSYCHOMOTOR HYPERACTIVITY [None]
  - IMPULSE-CONTROL DISORDER [None]
  - HYPERSEXUALITY [None]
